FAERS Safety Report 6429351-6 (Version None)
Quarter: 2009Q4

REPORT INFORMATION
  Report Type: 
  Country: None (occurrence: None)
  Receive Date: 20091105
  Receipt Date: 20090416
  Transmission Date: 20100525
  Serious: No
  Sender: FDA-Public Use
  Company Number: US-ABBOTT-09P-163-0568770-00

PATIENT
  Sex: Female
  Weight: 108.96 kg

DRUGS (3)
  1. KALETRA [Suspect]
     Indication: HIV INFECTION
     Dosage: UNKNOWN
     Route: 048
     Dates: start: 20070901
  2. ZIAGEN [Concomitant]
     Indication: HIV INFECTION
     Dosage: UNKNOWN
     Dates: start: 20070901
  3. VIREAD [Concomitant]
     Indication: HIV INFECTION
     Dosage: UNKNOWN
     Dates: start: 20070901

REACTIONS (1)
  - NAUSEA [None]
